FAERS Safety Report 5386406-5 (Version None)
Quarter: 2007Q3

REPORT INFORMATION
  Report Type: 
  Country: None (occurrence: None)
  Receive Date: 20070710
  Receipt Date: 20070710
  Transmission Date: 20080115
  Serious: Yes (Hospitalization)
  Sender: FDA-Public Use
  Company Number: None

PATIENT
  Sex: Male
  Weight: 150.1406 kg

DRUGS (1)
  1. REVLIMID [Suspect]
     Indication: CHRONIC LYMPHOCYTIC LEUKAEMIA
     Dosage: 25 MG DAILY DAYS 1-21  PO
     Route: 048
     Dates: start: 20070611, end: 20070701

REACTIONS (4)
  - DYSPHAGIA [None]
  - DYSPNOEA [None]
  - LYMPHADENOPATHY [None]
  - TONSILLAR HYPERTROPHY [None]
